FAERS Safety Report 19470361 (Version 1)
Quarter: 2021Q2

REPORT INFORMATION
  Report Type: Report from Study
  Country: None (occurrence: US)
  Receive Date: 20210629
  Receipt Date: 20210629
  Transmission Date: 20210717
  Serious: Yes (Other)
  Sender: FDA-Public Use
  Company Number: US-ABBVIE-21K-163-3967848-00

PATIENT
  Sex: Female

DRUGS (3)
  1. HUMIRA [Suspect]
     Active Substance: ADALIMUMAB
     Indication: CROHN^S DISEASE
     Route: 058
     Dates: start: 2011
  2. HUMIRA [Suspect]
     Active Substance: ADALIMUMAB
     Indication: CROHN^S DISEASE
     Route: 058
     Dates: start: 20200923
  3. ENTOCORT [Suspect]
     Active Substance: BUDESONIDE
     Indication: PRODUCT USED FOR UNKNOWN INDICATION
     Route: 065

REACTIONS (14)
  - Haemorrhoidal haemorrhage [Not Recovered/Not Resolved]
  - Diarrhoea [Not Recovered/Not Resolved]
  - Injection site pain [Unknown]
  - Small intestinal obstruction [Unknown]
  - Dysgeusia [Unknown]
  - Nausea [Not Recovered/Not Resolved]
  - Decreased appetite [Not Recovered/Not Resolved]
  - Abnormal faeces [Not Recovered/Not Resolved]
  - Abdominal pain [Unknown]
  - Weight decreased [Unknown]
  - Dyspnoea [Unknown]
  - Alopecia [Unknown]
  - Anxiety [Unknown]
  - Rectal haemorrhage [Not Recovered/Not Resolved]

NARRATIVE: CASE EVENT DATE: 2011
